FAERS Safety Report 12497860 (Version 1)
Quarter: 2016Q2

REPORT INFORMATION
  Report Type: Spontaneous
  Country: GB (occurrence: GB)
  Receive Date: 20160625
  Receipt Date: 20160625
  Transmission Date: 20160815
  Serious: Yes (Other)
  Sender: FDA-Public Use
  Company Number: GB-APOTEX-2016AP009437

PATIENT

DRUGS (7)
  1. PAROXETINE TABLET [Suspect]
     Active Substance: PAROXETINE
     Dosage: 30 MG, QD
     Route: 065
     Dates: start: 19980615, end: 20011216
  2. PAXIL [Suspect]
     Active Substance: PAROXETINE HYDROCHLORIDE
     Indication: PRODUCT USED FOR UNKNOWN INDICATION
     Dosage: 20 MG, U
     Route: 065
     Dates: start: 19960328, end: 19971028
  3. PAROXETINE. [Suspect]
     Active Substance: PAROXETINE
     Indication: PRODUCT USED FOR UNKNOWN INDICATION
     Dosage: UNK
     Route: 065
     Dates: start: 19950810
  4. PAROXETINE TABLET [Suspect]
     Active Substance: PAROXETINE
     Indication: PRODUCT USED FOR UNKNOWN INDICATION
     Dosage: 20 MG, QD
     Route: 065
     Dates: start: 19980305, end: 19981223
  5. ZIMOVANE [Concomitant]
     Active Substance: ZOPICLONE
     Indication: PRODUCT USED FOR UNKNOWN INDICATION
     Dosage: UNK
     Route: 065
  6. PROZAC [Concomitant]
     Active Substance: FLUOXETINE HYDROCHLORIDE
     Indication: PRODUCT USED FOR UNKNOWN INDICATION
     Dosage: UNK
     Route: 065
     Dates: start: 20020618
  7. PROTHIADEN [Concomitant]
     Active Substance: DOTHIEPIN HYDROCHLORIDE
     Indication: MUSCLE RELAXANT THERAPY
     Dosage: UNK
     Route: 065
     Dates: start: 20000317

REACTIONS (20)
  - Agitation [Unknown]
  - Bedridden [Unknown]
  - Vomiting [Unknown]
  - Insomnia [Unknown]
  - Panic attack [Unknown]
  - Tearfulness [Unknown]
  - Suicidal ideation [Unknown]
  - Withdrawal syndrome [Unknown]
  - Dizziness [Unknown]
  - Nausea [Unknown]
  - Incontinence [Unknown]
  - Headache [Unknown]
  - Mood swings [Unknown]
  - Disorientation [Unknown]
  - Depressed mood [Unknown]
  - Tremor [Unknown]
  - Nightmare [Unknown]
  - Malaise [Unknown]
  - Increased tendency to bruise [Unknown]
  - Asthenia [Unknown]

NARRATIVE: CASE EVENT DATE: 19951116
